FAERS Safety Report 6953333-9 (Version None)
Quarter: 2010Q3

REPORT INFORMATION
  Report Type: 
  Country: None (occurrence: None)
  Receive Date: 20100829
  Receipt Date: 20100608
  Transmission Date: 20110219
  Serious: No
  Sender: FDA-Public Use
  Company Number: US-ABBOTT-10P-163-0650234-00

PATIENT
  Sex: Male
  Weight: 102.6 kg

DRUGS (4)
  1. NIASPAN [Suspect]
     Indication: PRODUCT USED FOR UNKNOWN INDICATION
     Route: 048
     Dates: start: 20100601, end: 20100607
  2. MIDRIN [Concomitant]
     Indication: HEADACHE
     Dosage: PRN
     Route: 048
  3. EXCEDRIN (MIGRAINE) [Concomitant]
     Indication: HEADACHE
     Dosage: PRN
     Route: 048
  4. MULTI-VITAMINS [Concomitant]
     Indication: PRODUCT USED FOR UNKNOWN INDICATION
     Route: 048

REACTIONS (1)
  - HEADACHE [None]
